FAERS Safety Report 5259476-2 (Version None)
Quarter: 2007Q1

REPORT INFORMATION
  Report Type: 
  Country: None (occurrence: None)
  Receive Date: 20070305
  Receipt Date: 20070216
  Transmission Date: 20070707
  Serious: Yes (Other)
  Sender: FDA-Public Use
  Company Number: 2007RR-05866

PATIENT
  Sex: Male

DRUGS (1)
  1. IBUPROFEN [Suspect]
     Dosage: 1000 MG, BID

REACTIONS (4)
  - ABDOMINAL PAIN [None]
  - HAEMATEMESIS [None]
  - OESOPHAGEAL ULCER [None]
  - RECTAL HAEMORRHAGE [None]
